FAERS Safety Report 9523826 (Version 1)
Quarter: 2013Q3

REPORT INFORMATION
  Report Type: Spontaneous
  Country: US (occurrence: None)
  Receive Date: 20130912
  Receipt Date: 20130912
  Transmission Date: 20140515
  Serious: No
  Sender: FDA-Public Use
  Company Number: None

PATIENT
  Sex: Female

DRUGS (1)
  1. NEXAVAR 200MG BAYER [Suspect]
     Indication: RENAL CANCER
     Dosage: 400 MG BID PO
     Route: 048
     Dates: start: 20121127

REACTIONS (3)
  - Skin exfoliation [None]
  - Pain [None]
  - No therapeutic response [None]
